FAERS Safety Report 5961655-3 (Version None)
Quarter: 2008Q4

REPORT INFORMATION
  Report Type: 
  Country: None (occurrence: None)
  Receive Date: 20081121
  Receipt Date: 20081113
  Transmission Date: 20090506
  Serious: Yes (Hospitalization)
  Sender: FDA-Public Use
  Company Number: JP-AVENTIS-200813528JP

PATIENT
  Age: 57 Year
  Sex: Male

DRUGS (1)
  1. AMARYL [Suspect]
     Route: 048

REACTIONS (1)
  - HYPOGLYCAEMIC COMA [None]
